FAERS Safety Report 5218864-0 (Version None)
Quarter: 2007Q1

REPORT INFORMATION
  Report Type: 
  Country: None (occurrence: None)
  Receive Date: 20070125
  Receipt Date: 20070115
  Transmission Date: 20070707
  Serious: Yes (Other)
  Sender: FDA-Public Use
  Company Number: GB-JNJFOC-20061004720

PATIENT
  Sex: Female

DRUGS (5)
  1. CONCERTA [Suspect]
     Route: 065
  2. CONCERTA [Suspect]
     Indication: DRUG USE FOR UNKNOWN INDICATION
     Route: 065
  3. DOMPERIDONE [Concomitant]
  4. COCODAMOL [Concomitant]
  5. ZOPICLONE [Concomitant]

REACTIONS (1)
  - OPTIC NEURITIS [None]
